FAERS Safety Report 7378418-7 (Version None)
Quarter: 2011Q1

REPORT INFORMATION
  Report Type: 
  Country: None (occurrence: None)
  Receive Date: 20110323
  Receipt Date: 20110323
  Transmission Date: 20110831
  Serious: Yes (Other)
  Sender: FDA-Public Use
  Company Number: None

PATIENT
  Sex: Female
  Weight: 77.1115 kg

DRUGS (1)
  1. INVANZ [Suspect]
     Indication: POST PROCEDURAL INFECTION
     Dosage: 1 GM QD IV
     Route: 042
     Dates: start: 20110313, end: 20110322

REACTIONS (1)
  - RASH GENERALISED [None]
